FAERS Safety Report 7782634-X (Version None)
Quarter: 2011Q3

REPORT INFORMATION
  Report Type: 
  Country: None (occurrence: None)
  Receive Date: 20110928
  Receipt Date: 20110917
  Transmission Date: 20111222
  Serious: Yes (Other)
  Sender: FDA-Public Use
  Company Number: US-US-EMD SERONO, INC.-7083462

PATIENT
  Sex: Female

DRUGS (3)
  1. REBIF [Suspect]
     Indication: PRODUCT USED FOR UNKNOWN INDICATION
     Dates: start: 20051001, end: 20090101
  2. REBIF [Suspect]
     Route: 058
     Dates: start: 20110916
  3. TYLENOL-500 [Concomitant]
     Indication: PREMEDICATION

REACTIONS (4)
  - INFLUENZA [None]
  - DEPRESSION [None]
  - INJECTION SITE PAIN [None]
  - CORONARY ARTERIAL STENT INSERTION [None]
